FAERS Safety Report 23255985 (Version 2)
Quarter: 2023Q4

REPORT INFORMATION
  Report Type: Spontaneous
  Country: FR (occurrence: FR)
  Receive Date: 20231204
  Receipt Date: 20231218
  Transmission Date: 20240110
  Serious: Yes (Hospitalization)
  Sender: FDA-Public Use
  Company Number: FR-AFSSAPS-RN2023001255

PATIENT
  Age: 62 Year
  Sex: Male

DRUGS (1)
  1. AMOXICILLIN [Suspect]
     Active Substance: AMOXICILLIN
     Indication: Erysipelas
     Dosage: 6 GRAM,2G 3 FOIS PAR JOUR
     Route: 048
     Dates: start: 20231109, end: 20231114

REACTIONS (1)
  - Symmetrical drug-related intertriginous and flexural exanthema [Recovered/Resolved]

NARRATIVE: CASE EVENT DATE: 20231114
